FAERS Safety Report 15989526 (Version 5)
Quarter: 2019Q2

REPORT INFORMATION
  Report Type: Spontaneous
  Country: US (occurrence: US)
  Receive Date: 20190221
  Receipt Date: 20190607
  Transmission Date: 20190711
  Serious: No
  Sender: FDA-Public Use
  Company Number: US-PFIZER INC-2019058031

PATIENT
  Age: 58 Year
  Sex: Female
  Weight: 78 kg

DRUGS (4)
  1. LYRICA [Suspect]
     Active Substance: PREGABALIN
     Indication: PAIN
     Dosage: 50 MG, 2X/DAY
     Route: 048
     Dates: start: 20180509, end: 201901
  2. FLECTOR [Concomitant]
     Active Substance: DICLOFENAC EPOLAMINE
     Indication: BACK DISORDER
     Dosage: UNK
  3. PERCOCET [Concomitant]
     Active Substance: ACETAMINOPHEN\OXYCODONE HYDROCHLORIDE
     Indication: BACK DISORDER
     Dosage: UNK
  4. LYRICA [Suspect]
     Active Substance: PREGABALIN
     Indication: FIBROMYALGIA
     Dosage: 100 MG, 2X/DAY (2 IN MORNING 2 AT NIGHT)

REACTIONS (11)
  - Depression [Unknown]
  - Musculoskeletal stiffness [Unknown]
  - Movement disorder [Not Recovered/Not Resolved]
  - Weight increased [Not Recovered/Not Resolved]
  - Fall [Unknown]
  - Insomnia [Unknown]
  - Joint injury [Unknown]
  - Spinal pain [Unknown]
  - Feeling abnormal [Unknown]
  - Anxiety [Unknown]
  - Weight loss poor [Not Recovered/Not Resolved]
